FAERS Safety Report 23132311 (Version 2)
Quarter: 2023Q4

REPORT INFORMATION
  Report Type: Report from Study
  Country: US (occurrence: US)
  Receive Date: 20231101
  Receipt Date: 20231115
  Transmission Date: 20240109
  Serious: Yes (Hospitalization)
  Sender: FDA-Public Use
  Company Number: US-ABBVIE-5475005

PATIENT
  Sex: Male

DRUGS (1)
  1. RINVOQ [Suspect]
     Active Substance: UPADACITINIB
     Indication: Product used for unknown indication
     Dosage: FORM STRENGTH WAS 45 MILLIGRAM
     Route: 048
     Dates: start: 20230923, end: 20231105

REACTIONS (4)
  - Asthenia [Not Recovered/Not Resolved]
  - Condition aggravated [Recovering/Resolving]
  - Blood potassium decreased [Unknown]
  - Colectomy [Unknown]

NARRATIVE: CASE EVENT DATE: 20230101
